FAERS Safety Report 4593632-1 (Version None)
Quarter: 2005Q1

REPORT INFORMATION
  Report Type: 
  Country: None (occurrence: None)
  Receive Date: 20050224
  Receipt Date: 20041004
  Transmission Date: 20050727
  Serious: No
  Sender: FDA-Public Use
  Company Number: US-BRISTOL-MYERS SQUIBB COMPANY-12730933

PATIENT
  Age: 52 Year
  Sex: Female
  Weight: 51 kg

DRUGS (4)
  1. EXCEDRIN (MIGRAINE) [Suspect]
     Indication: FIBROMYALGIA
     Dosage: THE TABLET EXPLODED IN HER THROAT. IT BROKE APART + PIECES OF THE TABLET WENT UP IN THE NASAL AREA.
     Route: 048
     Dates: start: 20041002, end: 20041002
  2. WELLBUTRIN [Concomitant]
  3. PREMARIN [Concomitant]
  4. ESTROGEN [Concomitant]

REACTIONS (3)
  - DYSPNOEA [None]
  - RETCHING [None]
  - THROAT IRRITATION [None]
